FAERS Safety Report 9243000 (Version 1)
Quarter: 2013Q2

REPORT INFORMATION
  Report Type: Spontaneous
  Country: US (occurrence: US)
  Receive Date: 20130419
  Receipt Date: 20130419
  Transmission Date: 20140414
  Serious: Yes (Other)
  Sender: FDA-Public Use
  Company Number: US-009507513-1304USA008418

PATIENT
  Age: 59 Year
  Sex: Male

DRUGS (4)
  1. SINGULAIR [Suspect]
     Indication: HYPERSENSITIVITY
     Dosage: 10 MG, QD
     Route: 048
     Dates: start: 20130215, end: 20130401
  2. VITAMINS (UNSPECIFIED) [Concomitant]
  3. OMEGA-3 MARINE TRIGLYCERIDES [Concomitant]
  4. FOLIC ACID [Concomitant]

REACTIONS (3)
  - Grand mal convulsion [Recovering/Resolving]
  - Tongue biting [Recovering/Resolving]
  - Haemorrhage [Recovering/Resolving]
